FAERS Safety Report 11737080 (Version 2)
Quarter: 2015Q4

REPORT INFORMATION
  Report Type: Spontaneous
  Country: IT (occurrence: IT)
  Receive Date: 20151113
  Receipt Date: 20151231
  Transmission Date: 20160304
  Serious: Yes (Death, Other)
  Sender: FDA-Public Use
  Company Number: IT-GILEAD-2015-0177927

PATIENT
  Age: 62 Year
  Sex: Male

DRUGS (2)
  1. SOVALDI [Suspect]
     Active Substance: SOFOSBUVIR
     Indication: CHRONIC HEPATITIS C
     Dosage: 400 MG, QD
     Route: 048
     Dates: start: 20150318, end: 20150610
  2. SIMEPREVIR [Suspect]
     Active Substance: SIMEPREVIR
     Indication: CHRONIC HEPATITIS C
     Dosage: 150 MG, UNK
     Route: 048
     Dates: start: 20150318, end: 20150610

REACTIONS (5)
  - Hepatocellular carcinoma [Unknown]
  - Hepatic failure [Unknown]
  - Hepatic encephalopathy [Unknown]
  - Hyperbilirubinaemia [Unknown]
  - Multi-organ failure [Fatal]

NARRATIVE: CASE EVENT DATE: 20150619
